FAERS Safety Report 23352671 (Version 1)
Quarter: 2023Q4

REPORT INFORMATION
  Report Type: Report from Study
  Country: GB (occurrence: GB)
  Receive Date: 20231230
  Receipt Date: 20231230
  Transmission Date: 20240109
  Serious: Yes (Other)
  Sender: FDA-Public Use
  Company Number: GB-UCBSA-2023044844

PATIENT
  Sex: Female

DRUGS (1)
  1. BIMEKIZUMAB [Suspect]
     Active Substance: BIMEKIZUMAB
     Indication: Psoriasis
     Dosage: 160 MILLIGRAM
     Route: 058
     Dates: start: 202306

REACTIONS (3)
  - Eye infection fungal [Unknown]
  - Oral candidiasis [Unknown]
  - Dandruff [Unknown]

NARRATIVE: CASE EVENT DATE: 20230101
